FAERS Safety Report 8365871-5 (Version None)
Quarter: 2012Q2

REPORT INFORMATION
  Report Type: 
  Country: None (occurrence: None)
  Receive Date: 20120515
  Receipt Date: 20120503
  Transmission Date: 20120825
  Serious: Yes (Disabling, Other)
  Sender: FDA-Public Use
  Company Number: 2012MA005697

PATIENT
  Age: 67 Year
  Sex: Male

DRUGS (2)
  1. GEMCITABINE HYDROCHLORIDE [Suspect]
     Indication: NEOPLASM MALIGNANT
     Dosage: 1200 MG/MM^2;IV
     Route: 042
  2. CISPLATIN [Concomitant]

REACTIONS (3)
  - INTERMITTENT CLAUDICATION [None]
  - PULSE ABSENT [None]
  - ARTERIAL THROMBOSIS LIMB [None]
